FAERS Safety Report 22239626 (Version 1)
Quarter: 2023Q2

REPORT INFORMATION
  Report Type: Spontaneous
  Country: DE (occurrence: DE)
  Receive Date: 20230421
  Receipt Date: 20230421
  Transmission Date: 20230722
  Serious: Yes (Death, Other)
  Sender: FDA-Public Use
  Company Number: DE-TORRENT-00024413

PATIENT
  Age: 70 Year
  Sex: Male

DRUGS (8)
  1. VORICONAZOLE [Suspect]
     Active Substance: VORICONAZOLE
     Indication: Subcutaneous emphysema
     Dosage: UNKNOWN
     Route: 065
  2. VORICONAZOLE [Suspect]
     Active Substance: VORICONAZOLE
     Indication: Pneumomediastinum
  3. LINEZOLID [Suspect]
     Active Substance: LINEZOLID
     Indication: Pneumomediastinum
     Dosage: UNKNOWN
     Route: 065
  4. LINEZOLID [Suspect]
     Active Substance: LINEZOLID
     Indication: Subcutaneous emphysema
  5. GANCICLOVIR [Suspect]
     Active Substance: GANCICLOVIR
     Indication: Pneumomediastinum
     Dosage: UNKNOWN
     Route: 065
  6. GANCICLOVIR [Suspect]
     Active Substance: GANCICLOVIR
     Indication: Subcutaneous emphysema
  7. MEROPENEM [Suspect]
     Active Substance: MEROPENEM
     Indication: Subcutaneous emphysema
     Dosage: UNKNOWN
     Route: 065
  8. MEROPENEM [Suspect]
     Active Substance: MEROPENEM
     Indication: Pneumomediastinum

REACTIONS (2)
  - Respiratory failure [Fatal]
  - Condition aggravated [Not Recovered/Not Resolved]
